FAERS Safety Report 13600185 (Version 1)
Quarter: 2017Q2

REPORT INFORMATION
  Report Type: Spontaneous
  Country: NO (occurrence: NO)
  Receive Date: 20170601
  Receipt Date: 20170601
  Transmission Date: 20170830
  Serious: Yes (Other)
  Sender: FDA-Public Use
  Company Number: NO-SHIRE-NO201706931

PATIENT
  Age: 30 Year
  Sex: Female
  Weight: 53 kg

DRUGS (1)
  1. REVESTIVE [Suspect]
     Active Substance: TEDUGLUTIDE
     Indication: SHORT-BOWEL SYNDROME
     Dosage: 0.28 MG, UNKNOWN (DAY)
     Route: 058
     Dates: start: 20150608

REACTIONS (2)
  - Stenosis [Recovering/Resolving]
  - Stoma obstruction [Recovering/Resolving]

NARRATIVE: CASE EVENT DATE: 20170101
